FAERS Safety Report 8507276-X (Version None)
Quarter: 2012Q3

REPORT INFORMATION
  Report Type: 
  Country: None (occurrence: None)
  Receive Date: 20120712
  Receipt Date: 20120706
  Transmission Date: 20120928
  Serious: Yes (Death, Hospitalization)
  Sender: FDA-Public Use
  Company Number: US-ROCHE-1076362

PATIENT
  Sex: Female
  Weight: 95.34 kg

DRUGS (2)
  1. VEMURAFENIB [Suspect]
     Indication: METASTATIC MALIGNANT MELANOMA
     Route: 048
     Dates: start: 20120410, end: 20120603
  2. GDC-0973 (MEK INHIBITOR) [Suspect]
     Indication: METASTATIC MALIGNANT MELANOMA
     Route: 048
     Dates: start: 20120410, end: 20120603

REACTIONS (6)
  - APHASIA [None]
  - GRAND MAL CONVULSION [None]
  - METASTASES TO CENTRAL NERVOUS SYSTEM [None]
  - COMA [None]
  - HEMIPARESIS [None]
  - CEREBROVASCULAR ACCIDENT [None]
